FAERS Safety Report 18865974 (Version 2)
Quarter: 2021Q1

REPORT INFORMATION
  Report Type: Spontaneous
  Country: US (occurrence: US)
  Receive Date: 20210209
  Receipt Date: 20210330
  Transmission Date: 20210420
  Serious: Yes (Death, Other)
  Sender: FDA-Public Use
  Company Number: US-GLAXOSMITHKLINE-US2021GSK033498

PATIENT
  Sex: Male

DRUGS (8)
  1. ZANTAC [Suspect]
     Active Substance: RANITIDINE HYDROCHLORIDE
     Indication: INTESTINAL ULCER
     Dosage: 300 MG
     Route: 065
     Dates: start: 201402, end: 202002
  2. ZANTAC [Suspect]
     Active Substance: RANITIDINE HYDROCHLORIDE
     Indication: INTESTINAL ULCER
     Dosage: 300 MG
     Route: 065
     Dates: start: 201402, end: 202002
  3. ZANTAC [Suspect]
     Active Substance: RANITIDINE HYDROCHLORIDE
     Indication: GASTROOESOPHAGEAL REFLUX DISEASE
  4. RANITIDINE. [Suspect]
     Active Substance: RANITIDINE
     Indication: GASTROOESOPHAGEAL REFLUX DISEASE
  5. RANITIDINE. [Suspect]
     Active Substance: RANITIDINE
     Indication: INTESTINAL ULCER
     Dosage: 300 MG, QD
     Route: 065
     Dates: start: 201506, end: 202002
  6. RANITIDINE. [Suspect]
     Active Substance: RANITIDINE
     Indication: INTESTINAL ULCER
     Dosage: 300 MG, QD
     Route: 065
     Dates: start: 201506, end: 202002
  7. RANITIDINE. [Suspect]
     Active Substance: RANITIDINE
     Indication: GASTROOESOPHAGEAL REFLUX DISEASE
  8. ZANTAC [Suspect]
     Active Substance: RANITIDINE HYDROCHLORIDE
     Indication: GASTROOESOPHAGEAL REFLUX DISEASE

REACTIONS (7)
  - Neoplasm malignant [Fatal]
  - Bladder cancer [Unknown]
  - Small intestine carcinoma [Unknown]
  - Gallbladder cancer [Unknown]
  - Gastrointestinal carcinoma [Unknown]
  - Gastric cancer [Unknown]
  - Hepatic cancer [Unknown]
